FAERS Safety Report 24177154 (Version 1)
Quarter: 2024Q3

REPORT INFORMATION
  Report Type: Spontaneous
  Country: US (occurrence: None)
  Receive Date: 20240806
  Receipt Date: 20240806
  Transmission Date: 20241017
  Serious: No
  Sender: UNICHEM
  Company Number: US-ARIS GLOBAL-UCM202404-000404

PATIENT
  Age: 34 Year
  Sex: Female
  Weight: 81.6 kg

DRUGS (3)
  1. CYCLOBENZAPRINE HYDROCHLORIDE [Suspect]
     Active Substance: CYCLOBENZAPRINE HYDROCHLORIDE
     Indication: Abdominal pain
     Route: 048
     Dates: end: 20240411
  2. CYCLOBENZAPRINE HYDROCHLORIDE [Suspect]
     Active Substance: CYCLOBENZAPRINE HYDROCHLORIDE
     Indication: Abdominal rigidity
  3. TRAMADOL [Concomitant]
     Active Substance: TRAMADOL\TRAMADOL HYDROCHLORIDE
     Indication: Pain

REACTIONS (5)
  - Arthralgia [Unknown]
  - Back pain [Unknown]
  - Diarrhoea [Unknown]
  - Abdominal pain [Unknown]
  - Drug ineffective [Unknown]
